FAERS Safety Report 25893727 (Version 2)
Quarter: 2025Q4

REPORT INFORMATION
  Report Type: Spontaneous
  Country: US (occurrence: US)
  Receive Date: 20251008
  Receipt Date: 20251112
  Transmission Date: 20260117
  Serious: No
  Sender: SANDOZ
  Company Number: US-SANDOZ-SDZ2025US071741

PATIENT
  Sex: Female

DRUGS (1)
  1. ALBUTEROL SULFATE [Suspect]
     Active Substance: ALBUTEROL SULFATE
     Indication: Chronic obstructive pulmonary disease
     Dosage: 2 PUFFS EVERY 2-3 HOURS AS NEEDED, USUALLY TWICE A DAY
     Route: 055

REACTIONS (2)
  - Circumstance or information capable of leading to device use error [Unknown]
  - Product delivery mechanism issue [Unknown]
